FAERS Safety Report 5033644-7 (Version None)
Quarter: 2006Q2

REPORT INFORMATION
  Report Type: 
  Country: None (occurrence: None)
  Receive Date: 20060620
  Receipt Date: 20060602
  Transmission Date: 20061013
  Serious: Yes (Hospitalization)
  Sender: FDA-Public Use
  Company Number: ZA200606001742

PATIENT
  Age: 51 Year
  Sex: Female

DRUGS (3)
  1. HUMALOG [Suspect]
     Indication: HYPERGLYCAEMIA
     Dosage: 20 U, OTHER, SUBCUTANEOUS
     Route: 058
     Dates: start: 20050422, end: 20050422
  2. HUMULIN 30/70 (INSULIN HUMAN INJECTION, ISOPHANE) [Concomitant]
  3. INSULIN [Concomitant]

REACTIONS (5)
  - EPILEPSY [None]
  - HYPERGLYCAEMIA [None]
  - HYPERHIDROSIS [None]
  - HYPOGLYCAEMIA [None]
  - RESTLESSNESS [None]
